FAERS Safety Report 7579551-7 (Version None)
Quarter: 2011Q2

REPORT INFORMATION
  Report Type: 
  Country: None (occurrence: None)
  Receive Date: 20110629
  Receipt Date: 20110621
  Transmission Date: 20111010
  Serious: Yes (Other)
  Sender: FDA-Public Use
  Company Number: ZA-JNJFOC-20110610335

PATIENT
  Sex: Male

DRUGS (2)
  1. RISPERIDONE [Suspect]
     Indication: PRODUCT USED FOR UNKNOWN INDICATION
     Dosage: 0.25 AT NIGHT
     Route: 065
     Dates: start: 20110513
  2. CONCERTA [Suspect]
     Indication: PRODUCT USED FOR UNKNOWN INDICATION
     Route: 048
     Dates: start: 20110429

REACTIONS (3)
  - DRUG ADMINISTERED TO PATIENT OF INAPPROPRIATE AGE [None]
  - CARDIAC MURMUR [None]
  - MUSCULOSKELETAL CHEST PAIN [None]
